FAERS Safety Report 5435384-9 (Version None)
Quarter: 2007Q3

REPORT INFORMATION
  Report Type: 
  Country: None (occurrence: None)
  Receive Date: 20070831
  Receipt Date: 20070817
  Transmission Date: 20080115
  Serious: No
  Sender: FDA-Public Use
  Company Number: A0670883A

PATIENT

DRUGS (2)
  1. ALLI [Suspect]
     Dates: start: 20070616
  2. FIBER SUPPLEMENT [Concomitant]

REACTIONS (4)
  - ANXIETY [None]
  - CONSTIPATION [None]
  - DRUG INEFFECTIVE [None]
  - WEIGHT INCREASED [None]
